FAERS Safety Report 8401046-9 (Version None)
Quarter: 2012Q2

REPORT INFORMATION
  Report Type: 
  Country: None (occurrence: None)
  Receive Date: 20120601
  Receipt Date: 20120428
  Transmission Date: 20120825
  Serious: Yes (Death, Other)
  Sender: FDA-Public Use
  Company Number: US-RANBAXY-2012US-56168

PATIENT
  Age: 63 Year
  Sex: Male

DRUGS (2)
  1. CIPROFLOXACIN [Suspect]
     Indication: BRONCHITIS
     Dosage: UNK
     Route: 065
     Dates: end: 20110526
  2. CEFEPIME [Concomitant]
     Indication: BRONCHITIS
     Dosage: UNK
     Route: 065

REACTIONS (9)
  - PAIN IN EXTREMITY [None]
  - MUSCULAR WEAKNESS [None]
  - PAIN [None]
  - RENAL FAILURE ACUTE [None]
  - BLOOD CREATININE INCREASED [None]
  - NAUSEA [None]
  - FATIGUE [None]
  - VOMITING [None]
  - ASTHENIA [None]
